FAERS Safety Report 9654692 (Version 2)
Quarter: 2013Q4

REPORT INFORMATION
  Report Type: Report from Study
  Country: JP (occurrence: JP)
  Receive Date: 20131029
  Receipt Date: 20131029
  Transmission Date: 20140711
  Serious: Yes (Life-Threatening, Hospitalization)
  Sender: FDA-Public Use
  Company Number: JP-PFIZER INC-2013204331

PATIENT
  Age: 14 Month
  Sex: Male
  Weight: 9.35 kg

DRUGS (16)
  1. REVATIO [Suspect]
     Indication: PULMONARY ARTERIAL HYPERTENSION
     Dosage: 2 MG, 3X/DAY
     Route: 048
     Dates: start: 20090324, end: 20090603
  2. REVATIO [Suspect]
     Dosage: 3 MG, 3X/DAY
     Route: 048
     Dates: start: 20090604
  3. GASTER [Concomitant]
     Dosage: UNK
     Route: 048
     Dates: start: 20090321
  4. ASVERIN [Concomitant]
     Dosage: UNK
     Route: 048
     Dates: start: 20090420, end: 20090426
  5. PERIACTIN [Concomitant]
     Dosage: UNK
     Route: 048
     Dates: start: 20090420, end: 20090426
  6. MUCOSOLVAN [Concomitant]
     Dosage: UNK
     Route: 048
     Dates: start: 20090420, end: 20090426
  7. UNASYN [Concomitant]
     Dosage: UNK
     Route: 042
     Dates: start: 20090425, end: 20090429
  8. DALACIN [Concomitant]
     Dosage: UNK
     Route: 042
     Dates: start: 20090425, end: 20090429
  9. BOSMIN [Concomitant]
     Dosage: UNK
     Route: 055
     Dates: start: 20090416, end: 20090502
  10. BOSMIN [Concomitant]
     Dosage: UNK
     Route: 055
     Dates: start: 20090508, end: 20090515
  11. DECADRON [Concomitant]
     Dosage: UNK
     Route: 055
     Dates: start: 20090416, end: 20090502
  12. DECADRON [Concomitant]
     Dosage: UNK
     Route: 055
     Dates: start: 20090508, end: 20090515
  13. DECADRON [Concomitant]
     Dosage: UNK
     Route: 042
     Dates: start: 20090509, end: 20090509
  14. DECADRON [Concomitant]
     Dosage: UNK
     Route: 042
     Dates: start: 20090522, end: 20090522
  15. PANSPORIN [Concomitant]
     Dosage: UNK
     Route: 042
     Dates: start: 20090510, end: 20090513
  16. PANSPORIN [Concomitant]
     Dosage: UNK
     Route: 042
     Dates: start: 20090522, end: 20090527

REACTIONS (8)
  - Pneumonia aspiration [Recovering/Resolving]
  - Pneumonia aspiration [Recovering/Resolving]
  - Pneumonia aspiration [Recovering/Resolving]
  - Pulmonary hypertension [Not Recovered/Not Resolved]
  - Aspiration [Recovering/Resolving]
  - Upper respiratory tract inflammation [Recovered/Resolved]
  - Laryngeal oedema [Recovering/Resolving]
  - Laryngeal oedema [Recovering/Resolving]
